FAERS Safety Report 8326231-6 (Version None)
Quarter: 2012Q2

REPORT INFORMATION
  Report Type: 
  Country: None (occurrence: None)
  Receive Date: 20120427
  Receipt Date: 20120417
  Transmission Date: 20120825
  Serious: Yes (Other)
  Sender: FDA-Public Use
  Company Number: TPA2012A02193

PATIENT
  Age: 48 Year
  Sex: Female
  Weight: 99.7913 kg

DRUGS (4)
  1. LEVOXYL [Concomitant]
  2. SIMVASTATIN [Concomitant]
  3. PREVACID [Suspect]
     Indication: GASTROOESOPHAGEAL REFLUX DISEASE
     Dosage: 30 MG, 2 IN 1 D, PER ORAL
     Route: 048
  4. XANAX [Concomitant]

REACTIONS (1)
  - BREAST CANCER [None]
